FAERS Safety Report 7178529-5 (Version None)
Quarter: 2010Q4

REPORT INFORMATION
  Report Type: 
  Country: None (occurrence: None)
  Receive Date: 20101221
  Receipt Date: 20101209
  Transmission Date: 20110411
  Serious: Yes (Hospitalization)
  Sender: FDA-Public Use
  Company Number: JP-SP-2010-04049

PATIENT
  Sex: Male

DRUGS (9)
  1. IMMUCYST [Suspect]
     Indication: BLADDER CANCER
     Route: 043
     Dates: start: 20100623, end: 20100630
  2. NAPTOPIDIL [Concomitant]
     Indication: BENIGN PROSTATIC HYPERPLASIA
     Route: 048
  3. SOLIFENACIN SUCCINATE [Concomitant]
     Indication: HYPERTONIC BLADDER
     Route: 048
  4. ECABET SODIUM HYDRATE [Concomitant]
     Indication: GASTRITIS
     Route: 048
  5. MECOBALAMIN [Concomitant]
     Indication: PRODUCT USED FOR UNKNOWN INDICATION
     Route: 048
  6. ETODOLAC [Concomitant]
     Indication: DYSURIA
     Route: 048
  7. SILODOSIN [Concomitant]
     Indication: BENIGN PROSTATIC HYPERPLASIA
     Route: 048
  8. MEROPENEM HYDRATE [Concomitant]
     Indication: URINARY TRACT INFECTION
     Route: 042
  9. FAMOTIDINE [Concomitant]
     Indication: GASTRITIS
     Route: 048

REACTIONS (9)
  - ARTHRALGIA [None]
  - ARTHRITIS [None]
  - DECREASED APPETITE [None]
  - DYSURIA [None]
  - MICTURITION URGENCY [None]
  - PYELONEPHRITIS [None]
  - PYREXIA [None]
  - REITER'S SYNDROME [None]
  - RENAL DISORDER [None]
